FAERS Safety Report 17022044 (Version 1)
Quarter: 2019Q4

REPORT INFORMATION
  Report Type: Spontaneous
  Country: US (occurrence: US)
  Receive Date: 20191112
  Receipt Date: 20191112
  Transmission Date: 20200122
  Serious: No
  Sender: FDA-Public Use
  Company Number: US-JAZZ-JPI-P-017762

PATIENT
  Age: 50 Year
  Sex: Female
  Weight: 94.55 kg

DRUGS (6)
  1. XYREM [Suspect]
     Active Substance: SODIUM OXYBATE
     Indication: NARCOLEPSY
     Dosage: 2.25 G, BID
     Route: 048
     Dates: start: 20111014, end: 20111027
  2. XYREM [Suspect]
     Active Substance: SODIUM OXYBATE
     Indication: CHRONIC FATIGUE SYNDROME
     Dosage: 6 G, FIRST DOSE
     Route: 048
  3. XYREM [Suspect]
     Active Substance: SODIUM OXYBATE
     Indication: CATAPLEXY
     Dosage: 3 G, SECOND DOSE
     Route: 048
  4. NUVIGIL [Concomitant]
     Active Substance: ARMODAFINIL
  5. NORCO [Concomitant]
     Active Substance: ACETAMINOPHEN\HYDROCODONE BITARTRATE
  6. XYREM [Suspect]
     Active Substance: SODIUM OXYBATE
     Indication: FIBROMYALGIA
     Dosage: 3.75 G, BID
     Route: 048
     Dates: start: 20111028

REACTIONS (8)
  - Dyskinesia [Not Recovered/Not Resolved]
  - Muscle spasms [Unknown]
  - Retching [Not Recovered/Not Resolved]
  - Arthralgia [Unknown]
  - Intentional product use issue [Unknown]
  - Inappropriate affect [Unknown]
  - Increased appetite [Unknown]
  - Nausea [Not Recovered/Not Resolved]

NARRATIVE: CASE EVENT DATE: 201110
